FAERS Safety Report 23030415 (Version 2)
Quarter: 2023Q4

REPORT INFORMATION
  Report Type: Spontaneous
  Country: US (occurrence: US)
  Receive Date: 20231005
  Receipt Date: 20231006
  Transmission Date: 20240110
  Serious: Yes (Life-Threatening, Hospitalization)
  Sender: FDA-Public Use
  Company Number: US-009507513-2310USA000493

PATIENT
  Sex: Male

DRUGS (1)
  1. KEYTRUDA [Suspect]
     Active Substance: PEMBROLIZUMAB
     Dosage: UNK

REACTIONS (7)
  - Gait inability [Unknown]
  - Visual impairment [Unknown]
  - Dyspnoea [Unknown]
  - Feeding disorder [Unknown]
  - Flatulence [Unknown]
  - Dysphagia [Unknown]
  - Pain [Unknown]
